FAERS Safety Report 9719121 (Version 2)
Quarter: 2013Q4

REPORT INFORMATION
  Report Type: Spontaneous
  Country: US (occurrence: US)
  Receive Date: 20131127
  Receipt Date: 20131127
  Transmission Date: 20140711
  Serious: Yes (Hospitalization)
  Sender: FDA-Public Use
  Company Number: US-TMC-CABO-13002764

PATIENT
  Age: 7 Year
  Sex: Female
  Weight: 20.4 kg

DRUGS (17)
  1. COMETRIQ [Suspect]
     Indication: HEPATIC CANCER
     Dosage: 60 MG, ON M, W, F + SUN
     Route: 048
     Dates: start: 20130501, end: 201305
  2. COMETRIQ [Suspect]
     Dosage: 40 MG, ON M, W, F + SUN
     Route: 048
     Dates: start: 201305, end: 20130530
  3. COMETRIQ [Suspect]
     Dosage: UNK
  4. RAPAMUNE [Concomitant]
  5. MEGESTROL [Concomitant]
  6. AMLODIPINE [Concomitant]
  7. IMODIUM [Concomitant]
  8. BACTRIM [Concomitant]
  9. KLOR-CON [Concomitant]
  10. PHOSPHORUS [Concomitant]
  11. MAGNESIUM SULFATE [Concomitant]
  12. ZOFRAN [Concomitant]
  13. EMEND [Concomitant]
  14. EMLA [Concomitant]
  15. ATIVAN [Concomitant]
  16. K-PHOS NEUTRAL [Concomitant]
  17. ZANTAC [Concomitant]

REACTIONS (12)
  - Musculoskeletal pain [Unknown]
  - Off label use [Unknown]
  - Diaphragmatic hernia [Recovered/Resolved]
  - Nausea [Recovering/Resolving]
  - Vomiting [Recovered/Resolved]
  - Back pain [Recovering/Resolving]
  - Urine output decreased [Recovering/Resolving]
  - Snoring [Unknown]
  - Decreased appetite [Recovering/Resolving]
  - Abdominal pain [Recovering/Resolving]
  - Electrolyte imbalance [Unknown]
  - Thrombocytopenia [Unknown]
